FAERS Safety Report 9839504 (Version 2)
Quarter: 2015Q2

REPORT INFORMATION
  Report Type: Report from Study
  Country: US (occurrence: US)
  Receive Date: 20140124
  Receipt Date: 20150403
  Transmission Date: 20150821
  Serious: Yes (Death)
  Sender: FDA-Public Use
  Company Number: US-ROCHE-1338655

PATIENT
  Sex: Male

DRUGS (18)
  1. CYTOXAN [Concomitant]
     Active Substance: CYCLOPHOSPHAMIDE
     Route: 065
  2. IFOSFAMIDE. [Concomitant]
     Active Substance: IFOSFAMIDE
  3. BENADRYL [Concomitant]
     Active Substance: DIPHENHYDRAMINE HYDROCHLORIDE
     Route: 065
  4. HYDROXYDAUNORUBICIN [Concomitant]
     Active Substance: DOXORUBICIN
  5. ETOPOSIDE. [Concomitant]
     Active Substance: ETOPOSIDE
  6. RITUXAN [Suspect]
     Active Substance: RITUXIMAB
     Indication: LYMPHOMA
     Route: 042
     Dates: start: 20100819
  7. MESNA. [Concomitant]
     Active Substance: MESNA
     Route: 065
  8. DECADRON [Concomitant]
     Active Substance: DEXAMETHASONE
     Route: 065
  9. CARBOPLATIN. [Concomitant]
     Active Substance: CARBOPLATIN
  10. RITUXAN [Suspect]
     Active Substance: RITUXIMAB
     Route: 042
     Dates: start: 20130225
  11. ZOFRAN [Concomitant]
     Active Substance: ONDANSETRON HYDROCHLORIDE
     Route: 065
  12. PREDNISONE. [Concomitant]
     Active Substance: PREDNISONE
  13. NEULASTA [Concomitant]
     Active Substance: PEGFILGRASTIM
     Route: 065
  14. VINCRISTINE [Concomitant]
     Active Substance: VINCRISTINE
     Route: 065
  15. TYLENOL [Concomitant]
     Active Substance: ACETAMINOPHEN
     Route: 065
  16. ADRIAMYCIN [Concomitant]
     Active Substance: DOXORUBICIN HYDROCHLORIDE
     Route: 065
  17. VELCADE [Concomitant]
     Active Substance: BORTEZOMIB
     Route: 065
  18. PEPCID [Concomitant]
     Active Substance: FAMOTIDINE
     Route: 065

REACTIONS (1)
  - Death [Fatal]
